FAERS Safety Report 8902568 (Version 1)
Quarter: 2012Q4

REPORT INFORMATION
  Report Type: 
  Country: CN (occurrence: CN)
  Receive Date: 20121112
  Receipt Date: 20121112
  Transmission Date: 20130627
  Serious: Yes (Death, Hospitalization, Other)
  Sender: FDA-Public Use
  Company Number: PHHY2012CN103645

PATIENT
  Age: 47 Year
  Sex: Female

DRUGS (2)
  1. DOCETAXEL [Suspect]
     Indication: BREAST CANCER METASTATIC
     Dosage: 75 mg/m2, each cycle every three weeks
  2. AVASTIN [Suspect]
     Indication: BREAST CANCER METASTATIC

REACTIONS (8)
  - Multi-organ failure [Fatal]
  - Malignant neoplasm progression [Fatal]
  - Optic neuritis [Unknown]
  - Vision blurred [Unknown]
  - Visual acuity reduced [Recovering/Resolving]
  - Pupillary reflex impaired [Unknown]
  - Eye oedema [Unknown]
  - Blindness [Unknown]
